APPROVED DRUG PRODUCT: AZITHROMYCIN
Active Ingredient: AZITHROMYCIN
Strength: EQ 600MG BASE
Dosage Form/Route: TABLET;ORAL
Application: A065218 | Product #001 | TE Code: AB
Applicant: PLIVA INC
Approved: Nov 14, 2005 | RLD: No | RS: Yes | Type: RX